FAERS Safety Report 19507209 (Version 8)
Quarter: 2024Q2

REPORT INFORMATION
  Report Type: Spontaneous
  Country: US (occurrence: US)
  Receive Date: 20210708
  Receipt Date: 20240515
  Transmission Date: 20240716
  Serious: Yes (Other)
  Sender: FDA-Public Use
  Company Number: US-PFIZER INC-2021395868

PATIENT
  Age: 64 Year
  Sex: Female
  Weight: 77.11 kg

DRUGS (8)
  1. IBRANCE [Suspect]
     Active Substance: PALBOCICLIB
     Indication: Breast cancer metastatic
     Dosage: 100 MG, CYCLIC (DAILY X21 DAYS)
     Dates: start: 20210123
  2. IBRANCE [Suspect]
     Active Substance: PALBOCICLIB
     Dosage: 75 MG, DAILY (ONCE A DAY FOR 21 DAYS EVERY 28 DAY CYCLE)
     Route: 048
  3. IBRANCE [Suspect]
     Active Substance: PALBOCICLIB
     Dosage: 75 MG
     Dates: start: 20220904
  4. IBRANCE [Suspect]
     Active Substance: PALBOCICLIB
     Dosage: 125 MG ONCE DAILY 21 DAYS 7 DAYS OFF
     Dates: start: 201903
  5. IBRANCE [Suspect]
     Active Substance: PALBOCICLIB
     Dosage: 100 MG ONCE DAILY 21 DAYS 7 DAYS OFF
     Dates: start: 201903
  6. IBRANCE [Suspect]
     Active Substance: PALBOCICLIB
     Dosage: 75 MG ONCE DAILY 21 DAYS 7 DAYS OFF
     Dates: start: 201903
  7. XGEVA [Concomitant]
     Active Substance: DENOSUMAB
     Dosage: UNK
     Dates: start: 201903, end: 20210204
  8. ARIMIDEX [Concomitant]
     Active Substance: ANASTROZOLE
     Dosage: UNK
     Dates: start: 201903

REACTIONS (17)
  - Thrombocytopenia [Recovered/Resolved]
  - Neutropenia [Recovered/Resolved]
  - Pancytopenia [Recovered/Resolved]
  - Full blood count decreased [Recovered/Resolved]
  - Bronchitis [Recovered/Resolved]
  - Bone pain [Recovered/Resolved]
  - Pain of skin [Recovered/Resolved]
  - Platelet count decreased [Recovered/Resolved]
  - Peripheral swelling [Recovered/Resolved]
  - Joint swelling [Recovered/Resolved]
  - Anaemia [Recovered/Resolved]
  - Arthralgia [Recovered/Resolved]
  - Cough [Recovered/Resolved]
  - Productive cough [Recovered/Resolved]
  - Hypoaesthesia [Recovered/Resolved]
  - Paraesthesia [Recovered/Resolved]
  - Dysaesthesia [Recovered/Resolved]

NARRATIVE: CASE EVENT DATE: 20210101
